FAERS Safety Report 6457545-2 (Version None)
Quarter: 2009Q4

REPORT INFORMATION
  Report Type: 
  Country: None (occurrence: None)
  Receive Date: 20091125
  Receipt Date: 20091117
  Transmission Date: 20100525
  Serious: Yes (Hospitalization)
  Sender: FDA-Public Use
  Company Number: PHHO2009DE14367

PATIENT
  Sex: Female
  Weight: 51 kg

DRUGS (7)
  1. AMN107 AMN+CAP [Suspect]
     Indication: ACUTE MYELOID LEUKAEMIA
     Dosage: 200MG DAILY
     Route: 048
  2. RAD 666 RAD+TAB [Suspect]
     Indication: ACUTE MYELOID LEUKAEMIA
     Dosage: 5MG DAILY
     Route: 048
  3. BISOPROLOL [Concomitant]
  4. SIMVASTATIN [Concomitant]
  5. CORVATON [Concomitant]
  6. PANTOZOL [Concomitant]
  7. AMARYL [Concomitant]

REACTIONS (5)
  - GENERAL PHYSICAL HEALTH DETERIORATION [None]
  - HYPERGLYCAEMIA [None]
  - HYPOKALAEMIA [None]
  - PNEUMONIA [None]
  - PYREXIA [None]
